FAERS Safety Report 18762534 (Version 1)
Quarter: 2021Q1

REPORT INFORMATION
  Report Type: Spontaneous
  Country: US (occurrence: US)
  Receive Date: 20210120
  Receipt Date: 20210120
  Transmission Date: 20210419
  Serious: No
  Sender: FDA-Public Use
  Company Number: US-009507513-2101USA008652

PATIENT
  Age: 29 Year
  Sex: Female

DRUGS (12)
  1. MENOPUR [Concomitant]
     Active Substance: FOLLITROPIN\LUTEINIZING HORMONE
  2. NOVAREL [Concomitant]
     Active Substance: CHORIOGONADOTROPIN ALFA
  3. LEUPROLIDE [Suspect]
     Active Substance: LEUPROLIDE
     Dosage: UNK
  4. PROGESTERONE. [Concomitant]
     Active Substance: PROGESTERONE
  5. OMNITROPE [Concomitant]
     Active Substance: SOMATROPIN
  6. FOLLISTIM AQ [Suspect]
     Active Substance: FOLLITROPIN
     Indication: INFERTILITY FEMALE
     Dosage: STRENGTH: 900 IU/1.08 ML, DOSE: 475 DOSAGE FORM (UNITS), QD
     Route: 058
     Dates: start: 20200819
  7. AZITHROMYCIN ANHYDROUS. [Concomitant]
     Active Substance: AZITHROMYCIN ANHYDROUS
  8. GANIRELIX ACETATE INJECTION [Concomitant]
     Active Substance: GANIRELIX ACETATE
  9. IBUPROFEN. [Concomitant]
     Active Substance: IBUPROFEN
  10. ESTRADIOL. [Concomitant]
     Active Substance: ESTRADIOL
  11. LETROZOLE. [Concomitant]
     Active Substance: LETROZOLE
  12. DEXAMETHASONE. [Concomitant]
     Active Substance: DEXAMETHASONE

REACTIONS (1)
  - Headache [Unknown]

NARRATIVE: CASE EVENT DATE: 20201206
